FAERS Safety Report 19303707 (Version 1)
Quarter: 2021Q2

REPORT INFORMATION
  Report Type: Spontaneous
  Country: CN (occurrence: CN)
  Receive Date: 20210525
  Receipt Date: 20210525
  Transmission Date: 20210717
  Serious: Yes (Other)
  Sender: FDA-Public Use
  Company Number: CN-ELI_LILLY_AND_COMPANY-CN202105007687

PATIENT
  Age: 61 Year
  Sex: Female
  Weight: 45 kg

DRUGS (5)
  1. PEMETREXED. [Suspect]
     Active Substance: PEMETREXED
     Indication: LUNG NEOPLASM MALIGNANT
     Dosage: 0.5 G, DAILY
     Route: 041
     Dates: start: 20210506, end: 20210506
  2. SODIUM CHLORIDE. [Concomitant]
     Active Substance: SODIUM CHLORIDE
     Indication: MEDICATION DILUTION
     Dosage: 100 ML, DAILY
     Route: 041
     Dates: start: 20210506, end: 20210506
  3. CARBOPLATIN. [Suspect]
     Active Substance: CARBOPLATIN
     Indication: LUNG NEOPLASM MALIGNANT
     Dosage: 500 ML, DAILY
     Route: 041
     Dates: start: 20210507, end: 20210507
  4. PEMETREXED. [Suspect]
     Active Substance: PEMETREXED
     Dosage: 0.1 G, DAILY
     Route: 041
     Dates: start: 20210506, end: 20210506
  5. GLUCOSE [Concomitant]
     Active Substance: DEXTROSE
     Indication: MEDICATION DILUTION
     Dosage: 500 ML, DAILY
     Route: 041
     Dates: start: 20210507, end: 20210507

REACTIONS (6)
  - Gastrooesophageal reflux disease [Recovered/Resolved]
  - Dizziness [Recovered/Resolved]
  - Asthenia [Recovered/Resolved]
  - Vomiting [Recovered/Resolved]
  - Nausea [Recovered/Resolved]
  - Off label use [Unknown]

NARRATIVE: CASE EVENT DATE: 20210509
